FAERS Safety Report 8113204-1 (Version None)
Quarter: 2012Q1

REPORT INFORMATION
  Report Type: 
  Country: None (occurrence: None)
  Receive Date: 20120203
  Receipt Date: 20120123
  Transmission Date: 20120608
  Serious: Yes (Hospitalization)
  Sender: FDA-Public Use
  Company Number: PHHY2012VE006700

PATIENT
  Sex: Male

DRUGS (3)
  1. ONBREZ [Suspect]
     Indication: EMPHYSEMA
     Dosage: UNK
     Dates: start: 20120101
  2. FORADIL-MIFLONIDE [Concomitant]
     Dosage: UNK
     Dates: end: 20120101
  3. INDAPAMIDE [Concomitant]
     Indication: HYPERTENSION

REACTIONS (2)
  - LUNG DISORDER [None]
  - DRUG INEFFECTIVE [None]
